FAERS Safety Report 16475942 (Version 1)
Quarter: 2019Q2

REPORT INFORMATION
  Report Type: Spontaneous
  Country: RU (occurrence: RU)
  Receive Date: 20190625
  Receipt Date: 20190625
  Transmission Date: 20190711
  Serious: Yes (Other)
  Sender: FDA-Public Use
  Company Number: RU-009507513-1906RUS009771

PATIENT
  Age: 7 Year
  Sex: Female

DRUGS (1)
  1. NASONEX [Suspect]
     Active Substance: MOMETASONE FUROATE
     Dosage: UNK
     Dates: start: 201905, end: 2019

REACTIONS (3)
  - Retinal haemorrhage [Unknown]
  - Headache [Recovered/Resolved]
  - Retinal artery spasm [Unknown]

NARRATIVE: CASE EVENT DATE: 201905
